FAERS Safety Report 9493437 (Version 1)
Quarter: 2013Q3

REPORT INFORMATION
  Report Type: Spontaneous
  Country: FR (occurrence: FR)
  Receive Date: 20130902
  Receipt Date: 20130902
  Transmission Date: 20140515
  Serious: Yes (Hospitalization)
  Sender: FDA-Public Use
  Company Number: FR-PFIZER INC-2013252032

PATIENT
  Age: 62 Year
  Sex: Male

DRUGS (1)
  1. AMLOR [Suspect]
     Indication: HYPERTENSION
     Dosage: UNK
     Dates: start: 2000

REACTIONS (2)
  - Cerebrovascular accident [Unknown]
  - Haemorrhage [Unknown]
